FAERS Safety Report 20895415 (Version 1)
Quarter: 2022Q2

REPORT INFORMATION
  Report Type: Spontaneous
  Country: TR (occurrence: TR)
  Receive Date: 20220531
  Receipt Date: 20220531
  Transmission Date: 20220721
  Serious: Yes (Hospitalization)
  Sender: FDA-Public Use
  Company Number: TR-LUPIN PHARMACEUTICALS INC.-2022-07737

PATIENT
  Age: 34 Year
  Sex: Female

DRUGS (5)
  1. MISOPROSTOL [Suspect]
     Active Substance: MISOPROSTOL
     Indication: Uterine inversion
     Dosage: 800 MICROGRAM
     Route: 054
  2. METHYLERGONOVINE [Suspect]
     Active Substance: METHYLERGONOVINE
     Indication: Uterine inversion
     Dosage: 0.2 MG/ML (2 DOSES WITH 15 MIN INTERVAL)
     Route: 030
  3. NIFEDIPINE [Suspect]
     Active Substance: NIFEDIPINE
     Indication: Uterine inversion
     Dosage: 20 MG, SINGLE (TOTAL)
     Route: 060
  4. NIFEDIPINE [Suspect]
     Active Substance: NIFEDIPINE
     Dosage: 10 MG (REPEAT DOSE)
     Route: 060
  5. OXYTOCIN [Suspect]
     Active Substance: OXYTOCIN
     Indication: Uterine inversion
     Dosage: 101 IU/2 ML DOSAGE OXYTOCIN DOSAGE-30 IU OXYTOCIN WAS INFUSED IN 500 CC ISOTONIC
     Route: 042

REACTIONS (1)
  - Drug ineffective [Unknown]
